FAERS Safety Report 8176743-3 (Version None)
Quarter: 2012Q1

REPORT INFORMATION
  Report Type: 
  Country: None (occurrence: None)
  Receive Date: 20120229
  Receipt Date: 20120222
  Transmission Date: 20120608
  Serious: Yes (Death, Life-Threatening, Hospitalization)
  Sender: FDA-Public Use
  Company Number: 2012MA002505

PATIENT
  Age: 67 Year
  Sex: Female

DRUGS (1)
  1. METFORMIN HYDROCHLORIDE [Suspect]
     Dosage: ;PO
     Route: 048

REACTIONS (4)
  - DRUG RESISTANCE [None]
  - COMPLETED SUICIDE [None]
  - CIRCULATORY COLLAPSE [None]
  - LACTIC ACIDOSIS [None]
